FAERS Safety Report 4622971-0 (Version None)
Quarter: 2005Q1

REPORT INFORMATION
  Report Type: 
  Country: None (occurrence: None)
  Receive Date: 20050329
  Receipt Date: 20031125
  Transmission Date: 20050727
  Serious: Yes (Death)
  Sender: FDA-Public Use
  Company Number: 9990

PATIENT
  Age: 79 Year
  Sex: Female

DRUGS (2)
  1. METHOTREXATE [Suspect]
     Dosage: 10 MG
     Dates: start: 20031009, end: 20031019
  2. MAPROTILINE [Concomitant]

REACTIONS (5)
  - ACCIDENTAL OVERDOSE [None]
  - APHTHOUS STOMATITIS [None]
  - MEDICATION ERROR [None]
  - PANCYTOPENIA [None]
  - PYREXIA [None]
